FAERS Safety Report 5491168-7 (Version None)
Quarter: 2007Q4

REPORT INFORMATION
  Report Type: 
  Country: None (occurrence: None)
  Receive Date: 20071019
  Receipt Date: 20071009
  Transmission Date: 20080405
  Serious: Yes (Other)
  Sender: FDA-Public Use
  Company Number: CN-PFIZER INC-2007084781

PATIENT
  Sex: Female

DRUGS (1)
  1. SOLU-MEDROL [Suspect]
     Indication: ALLERGY PROPHYLAXIS
     Route: 042
     Dates: start: 20070101, end: 20070101

REACTIONS (3)
  - DERMATITIS BULLOUS [None]
  - DYSPNOEA [None]
  - ERYTHEMA [None]
